FAERS Safety Report 23870359 (Version 1)
Quarter: 2024Q2

REPORT INFORMATION
  Report Type: Spontaneous
  Country: PT (occurrence: PT)
  Receive Date: 20240517
  Receipt Date: 20240517
  Transmission Date: 20240716
  Serious: Yes (Other)
  Sender: FDA-Public Use
  Company Number: None

PATIENT
  Age: 48 Year
  Sex: Female

DRUGS (1)
  1. SIMPONI [Suspect]
     Active Substance: GOLIMUMAB
     Indication: Spondylitis
     Route: 065
     Dates: start: 20141014, end: 20141118

REACTIONS (1)
  - Bacterial pyelonephritis [Recovered/Resolved]

NARRATIVE: CASE EVENT DATE: 20141101
